FAERS Safety Report 7124540-X (Version None)
Quarter: 2010Q4

REPORT INFORMATION
  Report Type: 
  Country: None (occurrence: None)
  Receive Date: 20101128
  Receipt Date: 20101108
  Transmission Date: 20110411
  Serious: Yes (Other)
  Sender: FDA-Public Use
  Company Number: PHHY2010DE38562

PATIENT
  Age: 19 Year
  Sex: Male

DRUGS (1)
  1. ELIDEL [Suspect]
     Indication: DERMATITIS ATOPIC
     Dosage: TWICE DAILY FOR 3-4 DAYS DURING FLARES
     Route: 061
     Dates: start: 20060201, end: 20091001

REACTIONS (12)
  - ASTHENIA [None]
  - BACTERIAL INFECTION [None]
  - COUGH [None]
  - HEPATIC ENZYME INCREASED [None]
  - HEPATOMEGALY [None]
  - IMMUNOSUPPRESSION [None]
  - INFLUENZA LIKE ILLNESS [None]
  - LYMPHADENOPATHY [None]
  - LYMPHOMA [None]
  - PYREXIA [None]
  - RHINORRHOEA [None]
  - VIRAL INFECTION [None]
